FAERS Safety Report 4343711-9 (Version None)
Quarter: 2004Q2

REPORT INFORMATION
  Report Type: 
  Country: None (occurrence: None)
  Receive Date: 20040421
  Receipt Date: 20040421
  Transmission Date: 20050107
  Serious: Yes (Hospitalization)
  Sender: FDA-Public Use
  Company Number: None

PATIENT

DRUGS (5)
  1. NITROGLYCERIN [Suspect]
     Indication: HYPERTENSION
     Dosage: 0.4 MG X 1
  2. FUROSEMIDE [Suspect]
     Dosage: 40 MG QD
  3. TERAZOSIN HCL [Suspect]
     Dosage: 4 MG QHS
  4. AMLODIPINE [Suspect]
     Dosage: 5 MG Q
  5. TAMSULOSIN 0.8 MG QD [Suspect]
     Dosage: 0.8MG QD

REACTIONS (4)
  - BLOOD PRESSURE DECREASED [None]
  - DIZZINESS [None]
  - HYPOVOLAEMIA [None]
  - SYNCOPE [None]
